FAERS Safety Report 6922557-9 (Version None)
Quarter: 2010Q3

REPORT INFORMATION
  Report Type: 
  Country: None (occurrence: None)
  Receive Date: 20100813
  Receipt Date: 20100730
  Transmission Date: 20110219
  Serious: Yes (Hospitalization, Other)
  Sender: FDA-Public Use
  Company Number: US-ELI_LILLY_AND_COMPANY-US201008001195

PATIENT
  Sex: Female

DRUGS (3)
  1. FORTEO [Suspect]
     Indication: OSTEOPOROSIS
     Dosage: 20 UG, DAILY (1/D)
     Dates: end: 20100527
  2. FORTEO [Suspect]
     Dosage: 20 UG, DAILY (1/D)
  3. CARBIDOPA AND LEVODOPA [Concomitant]
     Indication: PARKINSON'S DISEASE

REACTIONS (6)
  - COLLAPSE OF LUNG [None]
  - COUGH [None]
  - DYSPNOEA [None]
  - FALL [None]
  - PAIN [None]
  - SPLENIC RUPTURE [None]
